FAERS Safety Report 5819589-0 (Version None)
Quarter: 2008Q3

REPORT INFORMATION
  Report Type: 
  Country: None (occurrence: None)
  Receive Date: 20080723
  Receipt Date: 20080714
  Transmission Date: 20090109
  Serious: Yes (Hospitalization)
  Sender: FDA-Public Use
  Company Number: JP-ABBOTT-08P-087-0462828-00

PATIENT
  Age: 2 Year
  Sex: Female

DRUGS (1)
  1. CEFDINIR [Suspect]
     Indication: BACTERIAL INFECTION
     Route: 048
     Dates: start: 20080601

REACTIONS (1)
  - NEPHRITIS INTERSTITIAL [None]
